FAERS Safety Report 16140363 (Version 1)
Quarter: 2019Q1

REPORT INFORMATION
  Report Type: Spontaneous
  Country: US (occurrence: US)
  Receive Date: 20190226
  Receipt Date: 20190226
  Transmission Date: 20190418
  Serious: Yes (Hospitalization)
  Sender: FDA-Public Use
  Company Number: None

PATIENT
  Age: 54 Year
  Sex: Male

DRUGS (18)
  1. CALCITRIOL. [Concomitant]
     Active Substance: CALCITRIOL
  2. SENSIPAR [Concomitant]
     Active Substance: CINACALCET HYDROCHLORIDE
  3. TRAZODONE [Concomitant]
     Active Substance: TRAZODONE HYDROCHLORIDE
  4. OCALIVA [Suspect]
     Active Substance: OBETICHOLIC ACID
     Indication: PRIMARY BILIARY CHOLANGITIS
  5. OCALIVA [Suspect]
     Active Substance: OBETICHOLIC ACID
  6. LEVEMIR [Concomitant]
     Active Substance: INSULIN DETEMIR
  7. PREDNISONE. [Concomitant]
     Active Substance: PREDNISONE
  8. LANTUS [Concomitant]
     Active Substance: INSULIN GLARGINE
  9. GLIPIZIDE. [Concomitant]
     Active Substance: GLIPIZIDE
  10. LISINOPRIL. [Concomitant]
     Active Substance: LISINOPRIL
  11. PANTOPRAZOLE [Concomitant]
     Active Substance: PANTOPRAZOLE
  12. ATORVASTATIN [Concomitant]
     Active Substance: ATORVASTATIN
  13. NORTRIPYLIN [Concomitant]
  14. GABAPENTIN. [Concomitant]
     Active Substance: GABAPENTIN
  15. NOVOLOG [Concomitant]
     Active Substance: INSULIN ASPART
  16. URSODIOL. [Concomitant]
     Active Substance: URSODIOL
  17. VALACYCLOVIR [Concomitant]
     Active Substance: VALACYCLOVIR HYDROCHLORIDE
  18. WARFARIN [Concomitant]
     Active Substance: WARFARIN

REACTIONS (1)
  - Musculoskeletal disorder [None]

NARRATIVE: CASE EVENT DATE: 201902
